FAERS Safety Report 23820889 (Version 2)
Quarter: 2024Q2

REPORT INFORMATION
  Report Type: Spontaneous
  Country: BR (occurrence: BR)
  Receive Date: 20240506
  Receipt Date: 20240614
  Transmission Date: 20240716
  Serious: Yes (Other)
  Sender: FDA-Public Use
  Company Number: BR-002147023-NVSC2024BR093564

PATIENT

DRUGS (1)
  1. COSENTYX [Suspect]
     Active Substance: SECUKINUMAB
     Indication: Psoriatic arthropathy
     Dosage: UNK (2 YEARS)
     Route: 065

REACTIONS (4)
  - Axonal and demyelinating polyneuropathy [Unknown]
  - Paraesthesia [Unknown]
  - Burning feet syndrome [Unknown]
  - Gait disturbance [Unknown]
